FAERS Safety Report 8059447-7 (Version None)
Quarter: 2012Q1

REPORT INFORMATION
  Report Type: 
  Country: None (occurrence: None)
  Receive Date: 20120120
  Receipt Date: 20120118
  Transmission Date: 20120608
  Serious: Yes (Other)
  Sender: FDA-Public Use
  Company Number: FR-ROCHE-1016393

PATIENT
  Age: 68 Year
  Sex: Male

DRUGS (1)
  1. CLONAZEPAM [Suspect]
     Indication: PRODUCT USED FOR UNKNOWN INDICATION

REACTIONS (7)
  - OVERDOSE [None]
  - VERTIGO [None]
  - BALANCE DISORDER [None]
  - INCOHERENT [None]
  - ROAD TRAFFIC ACCIDENT [None]
  - AMNESIA [None]
  - BURN OESOPHAGEAL [None]
